FAERS Safety Report 24354197 (Version 3)
Quarter: 2024Q4

REPORT INFORMATION
  Report Type: Spontaneous
  Country: US (occurrence: US)
  Receive Date: 20240923
  Receipt Date: 20241128
  Transmission Date: 20250114
  Serious: No
  Sender: MERCK
  Company Number: US-009507513-2409USA006737

PATIENT
  Sex: Female
  Weight: 87.1 kg

DRUGS (13)
  1. WINREVAIR [Suspect]
     Active Substance: SOTATERCEPT-CSRK
     Indication: Product used for unknown indication
     Dosage: STRENGTH: 60 MILLIGRAM
     Dates: start: 2024, end: 2024
  2. WINREVAIR [Suspect]
     Active Substance: SOTATERCEPT-CSRK
     Dosage: STRENGTH: 45 MILLIGRAM
     Dates: start: 2024, end: 2024
  3. REMODULIN [Suspect]
     Active Substance: TREPROSTINIL
     Indication: Pulmonary arterial hypertension
     Dosage: 0.029 MICROGRAM PER KILOGRAM, CONTINUING
     Route: 041
     Dates: start: 20230807
  4. VITAMIN D2 [Concomitant]
     Active Substance: ERGOCALCIFEROL
  5. TYLENOL [Concomitant]
     Active Substance: ACETAMINOPHEN
  6. OPSUMIT [Concomitant]
     Active Substance: MACITENTAN
  7. BUPROPION HYDROCHLORIDE [Concomitant]
     Active Substance: BUPROPION HYDROCHLORIDE
  8. SPIRONOLACTONE [Concomitant]
     Active Substance: SPIRONOLACTONE
  9. SKIN HAIR NAILS [Concomitant]
  10. DIGOXIN [Concomitant]
     Active Substance: DIGOXIN
  11. TORSEMIDE [Concomitant]
     Active Substance: TORSEMIDE
  12. VITAMINS [Concomitant]
     Active Substance: VITAMINS
  13. TADALAFIL [Concomitant]
     Active Substance: TADALAFIL

REACTIONS (3)
  - Injection site pruritus [Unknown]
  - Injection site rash [Unknown]
  - Platelet count decreased [Unknown]

NARRATIVE: CASE EVENT DATE: 20240101
